FAERS Safety Report 4903291-3 (Version None)
Quarter: 2006Q1

REPORT INFORMATION
  Report Type: 
  Country: None (occurrence: None)
  Receive Date: 20060208
  Receipt Date: 20060131
  Transmission Date: 20060701
  Serious: Yes (Hospitalization)
  Sender: FDA-Public Use
  Company Number: JP-ABBOTT-06P-087-0323771-00

PATIENT
  Sex: Male

DRUGS (2)
  1. TRICOR [Suspect]
     Indication: HYPERLIPIDAEMIA
     Route: 048
  2. MULTICOLD [Concomitant]
     Indication: DRUG USE FOR UNKNOWN INDICATION

REACTIONS (2)
  - ASPARTATE AMINOTRANSFERASE INCREASED [None]
  - JAUNDICE [None]
